FAERS Safety Report 8330109-1 (Version None)
Quarter: 2012Q1

REPORT INFORMATION
  Report Type: 
  Country: None (occurrence: None)
  Receive Date: 20120315
  Receipt Date: 20110408
  Transmission Date: 20120608
  Serious: No
  Sender: FDA-Public Use
  Company Number: PHHY2011US31073

PATIENT

DRUGS (1)
  1. GILENYA [Suspect]
     Dosage: OT
     Route: 050

REACTIONS (5)
  - FEELING COLD [None]
  - PARAESTHESIA [None]
  - HYPOAESTHESIA [None]
  - DYSGEUSIA [None]
  - HYPOAESTHESIA ORAL [None]
